FAERS Safety Report 5843268-7 (Version None)
Quarter: 2008Q3

REPORT INFORMATION
  Report Type: 
  Country: None (occurrence: None)
  Receive Date: 20080813
  Receipt Date: 20080812
  Transmission Date: 20090109
  Serious: Yes (Other)
  Sender: FDA-Public Use
  Company Number: FR-RB-003161-08

PATIENT
  Age: 81 Year
  Sex: Female

DRUGS (5)
  1. TEMGESIC [Suspect]
     Indication: DRUG USE FOR UNKNOWN INDICATION
     Route: 048
  2. HYPERIUM [Concomitant]
     Indication: DRUG USE FOR UNKNOWN INDICATION
     Dosage: DOSING INFORMATION UNKNOWN
  3. LOXEN [Concomitant]
     Indication: DRUG USE FOR UNKNOWN INDICATION
     Dosage: DOSING INFORMATION UNKNOWN
  4. COLCHICINE [Concomitant]
     Indication: DRUG USE FOR UNKNOWN INDICATION
     Dosage: DOSING INFORMATION UNKNOWN
  5. FRAXIPARINE [Suspect]
     Indication: DRUG USE FOR UNKNOWN INDICATION
     Route: 058
     Dates: end: 19920629

REACTIONS (1)
  - DEMENTIA [None]
